FAERS Safety Report 8910851 (Version 1)
Quarter: 2012Q4

REPORT INFORMATION
  Report Type: 
  Country: US (occurrence: US)
  Receive Date: 20121115
  Receipt Date: 20121115
  Transmission Date: 20130627
  Serious: Yes (Other)
  Sender: FDA-Public Use
  Company Number: US-ASTRAZENECA-2012SE84561

PATIENT
  Age: 57 Year
  Sex: Female
  Weight: 57.2 kg

DRUGS (9)
  1. SEROQUEL XR [Suspect]
     Indication: DEPRESSION
     Route: 048
  2. SEROQUEL XR [Suspect]
     Indication: DEPRESSION
     Dosage: CUTTING THE 100 MG IN HALF TO OBTAIN 150 MG
     Route: 048
  3. CITRALINE HDL [Concomitant]
     Route: 048
  4. TUROPION HCL XL [Concomitant]
     Route: 048
  5. LYRICA [Concomitant]
     Route: 048
  6. OPRAZALAM [Concomitant]
     Route: 048
  7. FIORINAL [Concomitant]
     Dosage: AS REQUIRED
     Route: 048
  8. VITAMINS [Concomitant]
  9. ALLERGY MEDS OTC [Concomitant]

REACTIONS (5)
  - Grand mal convulsion [Unknown]
  - Depressed level of consciousness [Recovered/Resolved]
  - Lethargy [Recovered/Resolved]
  - Somnolence [Recovered/Resolved]
  - Intentional drug misuse [Unknown]
